FAERS Safety Report 16104138 (Version 1)
Quarter: 2019Q1

REPORT INFORMATION
  Report Type: Report from Study
  Country: IT (occurrence: IT)
  Receive Date: 20190322
  Receipt Date: 20190322
  Transmission Date: 20190418
  Serious: Yes (Hospitalization)
  Sender: FDA-Public Use
  Company Number: IT-ACCORD-113882

PATIENT
  Age: 44 Year
  Sex: Female

DRUGS (11)
  1. DOCETAXEL. [Suspect]
     Active Substance: DOCETAXEL
     Indication: PRODUCT USED FOR UNKNOWN INDICATION
     Dates: start: 20180501
  2. AMOXICILLIN. [Concomitant]
     Active Substance: AMOXICILLIN
     Dates: end: 20180910
  3. EPIRUBICINE AHCL [Suspect]
     Active Substance: EPIRUBICIN
     Indication: PRODUCT USED FOR UNKNOWN INDICATION
     Route: 042
     Dates: start: 20180501
  4. ZARZIO [Concomitant]
     Active Substance: FILGRASTIM
     Dosage: STRENGTH 30 MU/0.5 ML, SOLUTION FOR INJECTION OR INFUSION IN PREFILLED S
  5. MYCOSTATIN [Concomitant]
     Active Substance: NYSTATIN
  6. ONDANSETRON [Concomitant]
     Active Substance: ONDANSETRON
  7. DELTACORTENE [Concomitant]
     Active Substance: PREDNISONE
  8. ZEFFIX [Concomitant]
     Active Substance: LAMIVUDINE
     Dosage: STRENGTH 100 MG
  9. PLASIL [Concomitant]
     Active Substance: METOCLOPRAMIDE HYDROCHLORIDE
  10. TACHIDOL [Concomitant]
     Active Substance: ACETAMINOPHEN\CODEINE PHOSPHATE
  11. LANSOX [Concomitant]
     Active Substance: LANSOPRAZOLE

REACTIONS (1)
  - Pharyngotonsillitis [Recovering/Resolving]

NARRATIVE: CASE EVENT DATE: 20180905
